FAERS Safety Report 7134923-X (Version None)
Quarter: 2010Q4

REPORT INFORMATION
  Report Type: 
  Country: None (occurrence: None)
  Receive Date: 20101203
  Receipt Date: 20101126
  Transmission Date: 20110411
  Serious: Yes (Hospitalization, Other)
  Sender: FDA-Public Use
  Company Number: CA-JNJFOC-20100510146

PATIENT
  Sex: Male
  Weight: 77.5 kg

DRUGS (6)
  1. REMICADE [Suspect]
     Indication: RHEUMATOID ARTHRITIS
     Route: 042
  2. REMICADE [Suspect]
     Indication: PSORIATIC ARTHROPATHY
     Route: 042
  3. METHOTREXATE [Suspect]
     Indication: PAIN
     Route: 058
  4. DEPO-MEDROL [Concomitant]
     Indication: PAIN
     Route: 030
  5. DEPO-MEDROL [Concomitant]
     Route: 030
  6. CALCIUM W/VITAMIN D NOS [Concomitant]

REACTIONS (1)
  - MYELOID LEUKAEMIA [None]
